FAERS Safety Report 19753516 (Version 12)
Quarter: 2025Q2

REPORT INFORMATION
  Report Type: Report from Study
  Country: CA (occurrence: CA)
  Receive Date: 20210827
  Receipt Date: 20250403
  Transmission Date: 20250716
  Serious: Yes (Other)
  Sender: NOVARTIS
  Company Number: CA-NOVARTISPH-NVSC2020CA249725

PATIENT
  Age: 47 Year
  Sex: Female

DRUGS (19)
  1. COSENTYX [Suspect]
     Active Substance: SECUKINUMAB
     Indication: Psoriasis
     Route: 058
     Dates: start: 20200313, end: 20200410
  2. COSENTYX [Suspect]
     Active Substance: SECUKINUMAB
     Route: 058
     Dates: start: 20200410, end: 202010
  3. COSENTYX [Suspect]
     Active Substance: SECUKINUMAB
     Route: 058
     Dates: start: 20201007, end: 20201028
  4. COSENTYX [Suspect]
     Active Substance: SECUKINUMAB
     Route: 058
     Dates: start: 20201105, end: 202104
  5. COSENTYX [Suspect]
     Active Substance: SECUKINUMAB
     Route: 058
     Dates: start: 202104, end: 20230201
  6. ENSTILAR [Concomitant]
     Active Substance: BETAMETHASONE DIPROPIONATE\CALCIPOTRIENE HYDRATE
     Indication: Product used for unknown indication
     Route: 065
     Dates: start: 20200617
  7. METHOTREXATE [Concomitant]
     Active Substance: METHOTREXATE
     Indication: Asthma
     Route: 065
     Dates: start: 20210901
  8. BIMEKIZUMAB [Concomitant]
     Active Substance: BIMEKIZUMAB
     Indication: Asthma
     Route: 065
     Dates: start: 20200313, end: 20200410
  9. BIMEKIZUMAB [Concomitant]
     Active Substance: BIMEKIZUMAB
     Route: 065
     Dates: start: 20200410, end: 202010
  10. BIMEKIZUMAB [Concomitant]
     Active Substance: BIMEKIZUMAB
     Route: 065
     Dates: start: 20201007, end: 20201028
  11. BIMEKIZUMAB [Concomitant]
     Active Substance: BIMEKIZUMAB
     Route: 065
     Dates: start: 20201105, end: 202104
  12. BIMEKIZUMAB [Concomitant]
     Active Substance: BIMEKIZUMAB
     Route: 065
     Dates: start: 202104, end: 20230201
  13. BIMEKIZUMAB [Concomitant]
     Active Substance: BIMEKIZUMAB
     Route: 065
  14. BIMEKIZUMAB [Concomitant]
     Active Substance: BIMEKIZUMAB
     Route: 065
  15. BIMEKIZUMAB [Concomitant]
     Active Substance: BIMEKIZUMAB
     Route: 065
  16. BIMEKIZUMAB [Concomitant]
     Active Substance: BIMEKIZUMAB
     Route: 065
     Dates: start: 20230214, end: 20230606
  17. BIMEKIZUMAB [Concomitant]
     Active Substance: BIMEKIZUMAB
     Route: 065
     Dates: start: 20230607, end: 20230825
  18. BIMEKIZUMAB [Concomitant]
     Active Substance: BIMEKIZUMAB
     Route: 065
     Dates: start: 20230914
  19. ROFLUMILAST [Concomitant]
     Active Substance: ROFLUMILAST
     Indication: Asthma
     Route: 065
     Dates: start: 20230824, end: 20240201

REACTIONS (8)
  - Psoriatic arthropathy [Recovered/Resolved with Sequelae]
  - Arthralgia [Recovered/Resolved]
  - Helicobacter gastritis [Recovered/Resolved]
  - Psoriasis [Recovered/Resolved]
  - Constipation [Recovered/Resolved]
  - Upper respiratory tract infection [Recovered/Resolved]
  - Oral candidiasis [Recovered/Resolved]
  - Melanocytic naevus [Not Recovered/Not Resolved]

NARRATIVE: CASE EVENT DATE: 20200601
